FAERS Safety Report 7040148-9 (Version None)
Quarter: 2010Q4

REPORT INFORMATION
  Report Type: 
  Country: None (occurrence: None)
  Receive Date: 20101006
  Receipt Date: 20100928
  Transmission Date: 20110411
  Serious: Yes (Life-Threatening, Hospitalization)
  Sender: FDA-Public Use
  Company Number: 1000012980

PATIENT
  Age: 78 Year
  Sex: Female

DRUGS (17)
  1. NEBIVOLOL HCL [Suspect]
     Dates: start: 20100301
  2. WARFARIN SODIUM [Suspect]
     Indication: THROMBOSIS PROPHYLAXIS
     Dosage: 21 MG (21 MG,1 IN 1 WK),ORAL
     Route: 048
     Dates: start: 20100310, end: 20100310
  3. CALCIUM [Concomitant]
  4. CYMBALTA [Concomitant]
  5. DOCOSAHEXAENOIC ACID [Concomitant]
  6. FISH OIL [Concomitant]
  7. LASIX [Concomitant]
  8. LISINOPRIL [Concomitant]
  9. METFORMIN [Concomitant]
  10. PENICILLIN [Concomitant]
  11. PRILOSEC [Concomitant]
  12. SYNTHROID [Concomitant]
  13. TRAMADOL [Concomitant]
  14. VERPAMIL [Concomitant]
  15. VITAMIN B [Concomitant]
  16. VITAMIN D [Concomitant]
  17. PRAVACHOL [Concomitant]

REACTIONS (22)
  - ABASIA [None]
  - ASTHENIA [None]
  - ATRIAL FIBRILLATION [None]
  - BLOOD CREATININE INCREASED [None]
  - BLOOD GLUCOSE DECREASED [None]
  - BLOOD GLUCOSE INCREASED [None]
  - BLOOD SODIUM DECREASED [None]
  - BLOOD UREA INCREASED [None]
  - BRADYCARDIA [None]
  - DIARRHOEA [None]
  - DIZZINESS [None]
  - DYSPNOEA EXERTIONAL [None]
  - ELECTROCARDIOGRAM QT PROLONGED [None]
  - ELECTROCARDIOGRAM T WAVE INVERSION [None]
  - HEART RATE INCREASED [None]
  - INCORRECT DOSE ADMINISTERED [None]
  - PCO2 DECREASED [None]
  - PRESYNCOPE [None]
  - PULSE ABSENT [None]
  - SHIFT TO THE LEFT [None]
  - SHOCK [None]
  - WHITE BLOOD CELL COUNT INCREASED [None]
